FAERS Safety Report 22211066 (Version 1)
Quarter: 2023Q2

REPORT INFORMATION
  Report Type: Spontaneous
  Country: MX (occurrence: MX)
  Receive Date: 20230414
  Receipt Date: 20230414
  Transmission Date: 20230721
  Serious: Yes (Other)
  Sender: FDA-Public Use
  Company Number: MX-AUROBINDO-AUR-APL-2023-029967

PATIENT
  Age: 52 Year
  Sex: Male

DRUGS (12)
  1. CIPROFLOXACIN [Suspect]
     Active Substance: CIPROFLOXACIN
     Indication: Rhinocerebral mucormycosis
     Dosage: UNK
     Route: 065
  2. DEXAMETHASONE [Suspect]
     Active Substance: DEXAMETHASONE
     Indication: Rhinocerebral mucormycosis
     Dosage: UNK
     Route: 065
  3. FLUOROMETHOLONE [Suspect]
     Active Substance: FLUOROMETHOLONE
     Indication: Rhinocerebral mucormycosis
     Dosage: UNK
     Route: 065
  4. MOXIFLOXACIN [Suspect]
     Active Substance: MOXIFLOXACIN
     Indication: Rhinocerebral mucormycosis
     Dosage: UNK
     Route: 065
  5. NEOMYCIN [Suspect]
     Active Substance: NEOMYCIN
     Indication: Rhinocerebral mucormycosis
     Dosage: UNK
     Route: 065
  6. SODIUM HYALURONATE [Concomitant]
     Active Substance: HYALURONATE SODIUM
     Indication: Rhinocerebral mucormycosis
     Dosage: UNK
     Route: 065
  7. DORZOLAMIDE [Concomitant]
     Active Substance: DORZOLAMIDE
     Indication: Rhinocerebral mucormycosis
     Dosage: UNK
     Route: 065
  8. TIMOLOL [Concomitant]
     Active Substance: TIMOLOL
     Indication: Rhinocerebral mucormycosis
     Dosage: UNK
     Route: 065
  9. DEXAMETHASONE [Concomitant]
     Active Substance: DEXAMETHASONE
     Indication: COVID-19 pneumonia
     Dosage: 8 MILLIGRAM, DAILY
     Route: 065
  10. AMPHOTERICIN B [Concomitant]
     Active Substance: AMPHOTERICIN B
     Indication: Rhinocerebral mucormycosis
     Dosage: UNK
     Route: 065
  11. CLINDAMYCIN [Concomitant]
     Active Substance: CLINDAMYCIN
     Indication: Rhinocerebral mucormycosis
     Dosage: UNK
     Route: 065
  12. LEVOFLOXACIN [Concomitant]
     Active Substance: LEVOFLOXACIN
     Indication: Rhinocerebral mucormycosis
     Dosage: UNK
     Route: 065

REACTIONS (1)
  - Disease progression [Unknown]
